FAERS Safety Report 5382071-1 (Version None)
Quarter: 2007Q3

REPORT INFORMATION
  Report Type: 
  Country: None (occurrence: None)
  Receive Date: 20070705
  Receipt Date: 20070625
  Transmission Date: 20080115
  Serious: Yes (Other)
  Sender: FDA-Public Use
  Company Number: A-US2007-16155

PATIENT
  Age: 37 Year
  Sex: Female
  Weight: 177.8 kg

DRUGS (12)
  1. VENTAVIS(ILOPROST INHALATION SOLUTION 5UG US) VENTAVIS(ILOPROST) INHAL [Suspect]
     Indication: PULMONARY HYPERTENSION
     Dosage: 5UG, 5X DAY, RESPIRATORY
     Route: 055
     Dates: start: 20070504, end: 20070505
  2. TRACLEER [Concomitant]
  3. REVATIO (SILDENAFIL CITRATE) [Concomitant]
  4. OXYGEN (OXYGEN) [Concomitant]
  5. INSULIN (INSULIN) [Concomitant]
  6. NPH-INSULIN (INSULIN INJECTION, ISOPHANE) [Concomitant]
  7. AVANDIA [Concomitant]
  8. ASPIRIN [Concomitant]
  9. NEURONTIN [Concomitant]
  10. METOPROLOL TARTRATE [Concomitant]
  11. LIPITOR [Concomitant]
  12. DEMADEX [Concomitant]

REACTIONS (4)
  - DYSPNOEA [None]
  - PRURITUS [None]
  - RASH [None]
  - THROAT TIGHTNESS [None]
